FAERS Safety Report 6095354-7 (Version None)
Quarter: 2009Q1

REPORT INFORMATION
  Report Type: 
  Country: None (occurrence: None)
  Receive Date: 20090225
  Receipt Date: 20090225
  Transmission Date: 20090719
  Serious: Yes (Other)
  Sender: FDA-Public Use
  Company Number: None

PATIENT
  Age: 67 Year
  Sex: Female
  Weight: 73.2559 kg

DRUGS (1)
  1. MEDROL [Suspect]
     Indication: ARTHROPOD BITE
     Dosage: 4 MG
     Dates: start: 20070907, end: 20070912

REACTIONS (4)
  - BLOOD GLUCOSE INCREASED [None]
  - CATARACT [None]
  - DIARRHOEA [None]
  - VISION BLURRED [None]
